FAERS Safety Report 12121165 (Version 1)
Quarter: 2016Q1

REPORT INFORMATION
  Report Type: Spontaneous
  Country: US (occurrence: US)
  Receive Date: 20160226
  Receipt Date: 20160226
  Transmission Date: 20160526
  Serious: No
  Sender: FDA-Public Use
  Company Number: US-PFIZER INC-2016058078

PATIENT
  Age: 57 Year
  Sex: Female
  Weight: 63.5 kg

DRUGS (1)
  1. PHENELZINE SULFATE. [Suspect]
     Active Substance: PHENELZINE SULFATE
     Indication: DEPRESSION
     Dosage: 30 MG, UNK
     Dates: start: 2016

REACTIONS (2)
  - Hypertension [Not Recovered/Not Resolved]
  - Dizziness [Unknown]
